FAERS Safety Report 7396529-7 (Version None)
Quarter: 2011Q2

REPORT INFORMATION
  Report Type: 
  Country: None (occurrence: None)
  Receive Date: 20110406
  Receipt Date: 20110330
  Transmission Date: 20111010
  Serious: Yes (Hospitalization)
  Sender: FDA-Public Use
  Company Number: AT-BRISTOL-MYERS SQUIBB COMPANY-15644487

PATIENT
  Age: 72 Year
  Sex: Female

DRUGS (11)
  1. VALPROIC ACID [Concomitant]
  2. SIMVASTATIN [Concomitant]
  3. QUETIAPINE [Concomitant]
     Dates: end: 20110201
  4. ROTIGOTINE [Concomitant]
     Dosage: ROTIGOTIN PLASTER
  5. ZOLPIDEM [Concomitant]
     Dates: end: 20110201
  6. BIPERIDEN HYDROCHLORIDE TAB [Concomitant]
  7. ZUCLOPENTHIXOL ACETATE [Concomitant]
     Dates: start: 20110202
  8. FUROSEMIDE [Concomitant]
  9. ABILIFY [Suspect]
     Indication: BIPOLAR DISORDER
     Route: 048
     Dates: start: 20040101
  10. PROTHIPENDYL HCL [Concomitant]
  11. LEVOTHYROXINE [Concomitant]

REACTIONS (1)
  - MANIA [None]
